FAERS Safety Report 7108128-2 (Version None)
Quarter: 2010Q4

REPORT INFORMATION
  Report Type: 
  Country: None (occurrence: None)
  Receive Date: 20101115
  Receipt Date: 20101115
  Transmission Date: 20110411
  Serious: Yes (Other)
  Sender: FDA-Public Use
  Company Number: None

PATIENT
  Sex: Female
  Weight: 86.1834 kg

DRUGS (3)
  1. ZOLEDRONIC ACID (RECLAST) [Suspect]
     Indication: OSTEOPOROSIS
     Dosage: ONCE YEAR IV
     Route: 042
     Dates: start: 20100929
  2. ZOPENEX NEBULIZING SOLUTION [Concomitant]
  3. PREDNISONE [Concomitant]

REACTIONS (5)
  - ASTHMA [None]
  - CHILLS [None]
  - DRY MOUTH [None]
  - IDIOPATHIC THROMBOCYTOPENIC PURPURA [None]
  - PYREXIA [None]
